FAERS Safety Report 9015497 (Version 1)
Quarter: 2013Q1

REPORT INFORMATION
  Report Type: Spontaneous
  Country: BR (occurrence: BR)
  Receive Date: 20130116
  Receipt Date: 20130116
  Transmission Date: 20140127
  Serious: Yes (Other)
  Sender: FDA-Public Use
  Company Number: PHHY2013BR003557

PATIENT
  Age: 70 Year
  Sex: Female
  Weight: 67 kg

DRUGS (4)
  1. DIOVAN TRIPLE [Suspect]
     Indication: BLOOD PRESSURE INADEQUATELY CONTROLLED
     Dosage: 2 DF, (160/12.5/5 MG) DAILY
     Route: 048
  2. METFORMINE ^MERCK^ [Suspect]
     Indication: DIABETES MELLITUS MANAGEMENT
     Dosage: 1 DF, UNK
  3. SIMVASTATIN [Concomitant]
     Dosage: 1 DF, UNK
     Route: 048
     Dates: start: 20130111
  4. ACETYLSALICYLIC ACID [Concomitant]
     Dosage: 1 DF, UNK
     Dates: start: 20130111

REACTIONS (2)
  - Renal impairment [Not Recovered/Not Resolved]
  - Thyroid atrophy [Not Recovered/Not Resolved]
